FAERS Safety Report 24550235 (Version 1)
Quarter: 2024Q4

REPORT INFORMATION
  Report Type: Spontaneous
  Country: HK (occurrence: HK)
  Receive Date: 20241025
  Receipt Date: 20241025
  Transmission Date: 20250115
  Serious: Yes (Death)
  Sender: ROCHE
  Company Number: HK-ROCHE-10000087590

PATIENT

DRUGS (1)
  1. COLUMVI [Suspect]
     Active Substance: GLOFITAMAB-GXBM
     Indication: Diffuse large B-cell lymphoma refractory
     Route: 065

REACTIONS (2)
  - Off label use [Unknown]
  - Disease progression [Fatal]
